FAERS Safety Report 21824959 (Version 2)
Quarter: 2023Q1

REPORT INFORMATION
  Report Type: Spontaneous
  Country: SG (occurrence: SG)
  Receive Date: 20230105
  Receipt Date: 20230118
  Transmission Date: 20230417
  Serious: Yes (Other)
  Sender: FDA-Public Use
  Company Number: SG-TEVA-2022-SG-2842282

PATIENT
  Age: 51 Year
  Sex: Female

DRUGS (5)
  1. MYCOPHENOLATE MOFETIL [Suspect]
     Active Substance: MYCOPHENOLATE MOFETIL
     Indication: Interstitial lung disease
     Dosage: 2 GRAM DAILY;
     Route: 048
  2. METHYLPREDNISOLONE [Concomitant]
     Active Substance: METHYLPREDNISOLONE
     Indication: Interstitial lung disease
     Dosage: 1 GRAM DAILY;
     Route: 042
  3. ZOLEDRONIC ACID [Concomitant]
     Active Substance: ZOLEDRONIC ACID
     Indication: Osteitis deformans
     Dosage: RECEIVED A SINGLE DOSE
     Route: 042
  4. CALCIUM CARBONATE [Concomitant]
     Active Substance: CALCIUM CARBONATE
     Indication: Osteitis deformans
     Dosage: 1250 MILLIGRAM DAILY;
     Route: 065
  5. CHOLECALCIFEROL [Concomitant]
     Active Substance: CHOLECALCIFEROL
     Indication: Osteitis deformans
     Dosage: 1000 IU (INTERNATIONAL UNIT) DAILY;
     Route: 065

REACTIONS (4)
  - Dermatomyositis [Recovering/Resolving]
  - Rash [Recovering/Resolving]
  - Myalgia [Recovering/Resolving]
  - Drug ineffective [Unknown]
